FAERS Safety Report 7259666-3 (Version None)
Quarter: 2011Q1

REPORT INFORMATION
  Report Type: 
  Country: None (occurrence: None)
  Receive Date: 20110130
  Receipt Date: 20100915
  Transmission Date: 20110831
  Serious: Yes (Hospitalization)
  Sender: FDA-Public Use
  Company Number: US-ABBOTT-10P-163-0643705-00

PATIENT
  Sex: Female
  Weight: 106.69 kg

DRUGS (9)
  1. TRAMADOL HCL [Concomitant]
     Indication: PSORIATIC ARTHROPATHY
  2. HUMIRA [Suspect]
     Route: 058
     Dates: end: 20070101
  3. BENICAR HCT [Concomitant]
     Indication: HYPERTENSION
  4. METOPROLOL [Concomitant]
     Indication: DYSPNOEA
     Dates: start: 20100601
  5. SOMA [Concomitant]
     Indication: PSORIATIC ARTHROPATHY
  6. NEURONTIN [Concomitant]
     Indication: NEUROPATHY PERIPHERAL
  7. NEXIUM [Concomitant]
     Indication: GASTROOESOPHAGEAL REFLUX DISEASE
  8. HUMIRA [Suspect]
     Indication: PSORIATIC ARTHROPATHY
     Route: 058
     Dates: start: 20090101, end: 20100101
  9. NEURONTIN [Concomitant]
     Indication: PSORIATIC ARTHROPATHY

REACTIONS (11)
  - DYSPNOEA [None]
  - ABDOMINAL DISTENSION [None]
  - MIGRAINE [None]
  - FATIGUE [None]
  - PAIN [None]
  - WEIGHT INCREASED [None]
  - ABDOMINAL PAIN [None]
  - CHEST DISCOMFORT [None]
  - CORONARY ARTERY OCCLUSION [None]
  - CONDITION AGGRAVATED [None]
  - ERUCTATION [None]
